FAERS Safety Report 17515253 (Version 2)
Quarter: 2022Q4

REPORT INFORMATION
  Report Type: Spontaneous
  Country: FR (occurrence: FR)
  Receive Date: 20200309
  Receipt Date: 20221009
  Transmission Date: 20230113
  Serious: Yes (Other)
  Sender: FDA-Public Use
  Company Number: None

PATIENT
  Age: 21 Year
  Sex: Male
  Weight: 68 kg

DRUGS (3)
  1. DIAZEPAM [Suspect]
     Active Substance: DIAZEPAM
     Indication: Intentional overdose
     Route: 048
     Dates: start: 20200216, end: 20200216
  2. ALCOHOL [Suspect]
     Active Substance: ALCOHOL
     Indication: Poisoning deliberate
     Dosage: NP
     Route: 048
     Dates: start: 20200216, end: 20200216
  3. NITROUS OXIDE [Suspect]
     Active Substance: NITROUS OXIDE
     Indication: Poisoning deliberate
     Route: 055
     Dates: start: 20200216, end: 20200216

REACTIONS (2)
  - Drug abuse [Unknown]
  - Poisoning deliberate [Recovered/Resolved]

NARRATIVE: CASE EVENT DATE: 20200216
